FAERS Safety Report 10671914 (Version 2)
Quarter: 2015Q1

REPORT INFORMATION
  Report Type: Report from Study
  Country: CA (occurrence: CA)
  Receive Date: 20141223
  Receipt Date: 20150116
  Transmission Date: 20150720
  Serious: Yes (Other)
  Sender: FDA-Public Use
  Company Number: CA-ABBVIE-14K-028-1322394-00

PATIENT
  Sex: Female
  Weight: 63.56 kg

DRUGS (1)
  1. HUMIRA [Suspect]
     Active Substance: ADALIMUMAB
     Indication: PSORIASIS
     Route: 058

REACTIONS (4)
  - Stress [Recovered/Resolved]
  - Gait disturbance [Not Recovered/Not Resolved]
  - Psoriasis [Recovered/Resolved]
  - Nerve root compression [Recovered/Resolved]

NARRATIVE: CASE EVENT DATE: 2013
